FAERS Safety Report 20113275 (Version 1)
Quarter: 2021Q4

REPORT INFORMATION
  Report Type: Spontaneous
  Country: US (occurrence: US)
  Receive Date: 20211125
  Receipt Date: 20211125
  Transmission Date: 20220303
  Serious: No
  Sender: FDA-Public Use
  Company Number: US-ELI_LILLY_AND_COMPANY-US202111011306

PATIENT
  Age: 77 Year
  Sex: Female

DRUGS (1)
  1. LYUMJEV [Suspect]
     Active Substance: INSULIN LISPRO-AABC
     Indication: Type 1 diabetes mellitus
     Dosage: 22 U, DAILY
     Route: 058
     Dates: start: 20211121

REACTIONS (3)
  - Infusion site mass [Recovering/Resolving]
  - Infusion site haemorrhage [Recovering/Resolving]
  - Infusion site erythema [Unknown]

NARRATIVE: CASE EVENT DATE: 20211123
